FAERS Safety Report 10955430 (Version 4)
Quarter: 2015Q3

REPORT INFORMATION
  Report Type: Report from Study
  Country: JP (occurrence: JP)
  Receive Date: 20150326
  Receipt Date: 20150717
  Transmission Date: 20151125
  Serious: Yes (Death, Life-Threatening)
  Sender: FDA-Public Use
  Company Number: JP-PFIZER INC-2014207071

PATIENT
  Age: 86 Year
  Sex: Female
  Weight: 57 kg

DRUGS (12)
  1. XALKORI [Suspect]
     Active Substance: CRIZOTINIB
     Dosage: 250 MG, 2X/DAY
     Route: 048
     Dates: start: 20140626, end: 20140703
  2. DOPS [Concomitant]
     Active Substance: DROXIDOPA
     Dosage: 100 MG, 3X/DAY
     Route: 048
     Dates: start: 20140617, end: 20140720
  3. XALKORI [Suspect]
     Active Substance: CRIZOTINIB
     Indication: NON-SMALL CELL LUNG CANCER
     Dosage: 200 MG, 2X/DAY
     Route: 048
     Dates: start: 20140603, end: 20140613
  4. SAMSCA [Concomitant]
     Active Substance: TOLVAPTAN
     Dosage: 3.75 MG, 1X/DAY
     Route: 048
     Dates: start: 20140618, end: 20140619
  5. LANIRAPID [Concomitant]
     Active Substance: METILDIGOXIN
     Dosage: 0.05 MG, 1X/DAY
     Route: 048
     Dates: start: 20140627, end: 20140720
  6. DENOTAS [Concomitant]
     Active Substance: CALCIUM CARBONATE\CHOLECALCIFEROL\MAGNESIUM CARBONATE
     Dosage: 2 DF, 1X/DAY
     Route: 048
     Dates: start: 20140526, end: 20140720
  7. RISUMIC [Concomitant]
     Active Substance: AMEZINIUM METILSULFATE
     Dosage: 5 MG, 2X/DAY
     Route: 048
     Dates: end: 20140720
  8. SAMSCA [Concomitant]
     Active Substance: TOLVAPTAN
     Dosage: 7.5 UNK, UNK
     Route: 048
     Dates: start: 20140620, end: 20140720
  9. XALKORI [Suspect]
     Active Substance: CRIZOTINIB
     Dosage: 250 MG, 2X/DAY
     Route: 048
     Dates: start: 20140614, end: 20140617
  10. LASIX [Concomitant]
     Active Substance: FUROSEMIDE
     Dosage: 40 MG, 1X/DAY
     Route: 048
     Dates: start: 20140613, end: 20140616
  11. LENDORMIN [Concomitant]
     Active Substance: BROTIZOLAM
     Dosage: 0.25 MG, AS NEEDED
     Route: 048
     Dates: end: 20140720
  12. FLORINEF ACETATE [Concomitant]
     Active Substance: FLUDROCORTISONE ACETATE
     Dosage: 0.05 MG, 1X/DAY
     Route: 048
     Dates: start: 20140605, end: 20140616

REACTIONS (2)
  - Cardiac failure [Fatal]
  - Hepatotoxicity [Recovered/Resolved with Sequelae]

NARRATIVE: CASE EVENT DATE: 20140616
